FAERS Safety Report 16175015 (Version 1)
Quarter: 2019Q2

REPORT INFORMATION
  Report Type: Spontaneous
  Country: US (occurrence: US)
  Receive Date: 20190409
  Receipt Date: 20190409
  Transmission Date: 20190711
  Serious: No
  Sender: FDA-Public Use
  Company Number: US-PERRIGO-18US005718

PATIENT
  Age: 78 Year
  Sex: Female
  Weight: 56.69 kg

DRUGS (2)
  1. ACETAMINOPHEN. [Suspect]
     Active Substance: ACETAMINOPHEN
     Dosage: 1/2 TABLET AT 0800, 1/4 TABLET AT 0740 AND 0900
     Route: 048
     Dates: start: 20180524, end: 20180524
  2. ACETAMINOPHEN. [Suspect]
     Active Substance: ACETAMINOPHEN
     Indication: PAIN
     Dosage: 1/4 TABLET, BID, PRN
     Route: 048
     Dates: start: 201805, end: 201805

REACTIONS (6)
  - Nausea [Not Recovered/Not Resolved]
  - Incorrect product administration duration [Recovered/Resolved]
  - Asthenia [Not Recovered/Not Resolved]
  - Dizziness [Not Recovered/Not Resolved]
  - Underdose [Recovered/Resolved]
  - Wrong technique in product usage process [Recovered/Resolved]

NARRATIVE: CASE EVENT DATE: 201805
